FAERS Safety Report 9525184 (Version 3)
Quarter: 2015Q1

REPORT INFORMATION
  Report Type: Spontaneous
  Country: US (occurrence: None)
  Receive Date: 20130912
  Receipt Date: 20150127
  Transmission Date: 20150721
  Serious: Yes (Other)
  Sender: FDA-Public Use
  Company Number: 2013-US-000104

PATIENT
  Age: 36 Year
  Sex: Female
  Weight: 77.1 kg

DRUGS (2)
  1. XYREM [Suspect]
     Active Substance: SODIUM OXYBATE
     Indication: NARCOLEPSY
     Route: 048
     Dates: start: 201112
  2. XYREM [Suspect]
     Active Substance: SODIUM OXYBATE
     Indication: SOMNOLENCE
     Route: 048
     Dates: start: 201112

REACTIONS (15)
  - Lethargy [None]
  - Dizziness [None]
  - Tremor [None]
  - Biliary cirrhosis primary [None]
  - Local swelling [None]
  - Chest pain [None]
  - Musculoskeletal pain [None]
  - Liver disorder [None]
  - Pain [None]
  - Peripheral swelling [None]
  - Pain in extremity [None]
  - Neck pain [None]
  - Asthenia [None]
  - Enuresis [None]
  - Hepatic enzyme increased [None]

NARRATIVE: CASE EVENT DATE: 2011
